FAERS Safety Report 4846471-8 (Version None)
Quarter: 2005Q4

REPORT INFORMATION
  Report Type: 
  Country: None (occurrence: None)
  Receive Date: 20051206
  Receipt Date: 20051026
  Transmission Date: 20060501
  Serious: Yes (Other)
  Sender: FDA-Public Use
  Company Number: FRWYE094727OCT05

PATIENT
  Sex: Female

DRUGS (2)
  1. ENBREL [Suspect]
     Indication: PSORIATIC ARTHROPATHY
     Dosage: UNKNOWN
     Route: 058
     Dates: start: 20050401, end: 20050801
  2. BELLADONNA EXTRACT/CAFFEINE/OPIUM [Concomitant]
     Indication: EPILEPSY
     Dosage: UNKNOWN
     Route: 048
     Dates: start: 19800101

REACTIONS (3)
  - ANTINUCLEAR ANTIBODY POSITIVE [None]
  - CYTOLYTIC HEPATITIS [None]
  - EOSINOPHILIA [None]
